FAERS Safety Report 10447671 (Version 1)
Quarter: 2014Q1

REPORT INFORMATION
  Report Type: Spontaneous
  Country: US (occurrence: None)
  Receive Date: 20130305
  Receipt Date: 20130305
  Transmission Date: 20141002
  Serious: Yes (Other)
  Sender: FDA-Public Use
  Company Number: 163-21880-12091053

PATIENT
  Age: 63 Year
  Sex: Male

DRUGS (1)
  1. REVLIMID (LENALIDOMIDE) CAPSULES [Suspect]
     Indication: PLASMA CELL MYELOMA
     Route: 048
     Dates: start: 20101025

REACTIONS (1)
  - Drug dose omission [None]
